FAERS Safety Report 10453930 (Version 1)
Quarter: 2014Q3

REPORT INFORMATION
  Report Type: Report from Study
  Country: US (occurrence: US)
  Receive Date: 20140915
  Receipt Date: 20140915
  Transmission Date: 20150326
  Serious: Yes (Hospitalization)
  Sender: FDA-Public Use
  Company Number: US-TAKEDA-2014MPI002418

PATIENT
  Age: 74 Year
  Sex: Male
  Weight: 99.4 kg

DRUGS (3)
  1. VELCADE [Suspect]
     Active Substance: BORTEZOMIB
     Indication: PLASMA CELL MYELOMA
     Dosage: 1.3 MG/M2, 1/WEEK
     Route: 042
     Dates: start: 20130510, end: 20140327
  2. DECADRON [Suspect]
     Active Substance: DEXAMETHASONE
     Indication: PLASMA CELL MYELOMA
     Dosage: 10 MG, 1/WEEK
     Route: 042
     Dates: start: 20130510, end: 20140313
  3. CYTOXAN [Suspect]
     Active Substance: CYCLOPHOSPHAMIDE
     Indication: PLASMA CELL MYELOMA
     Dosage: 300 MG/M2, 1/WEEK
     Route: 042
     Dates: start: 20130510, end: 20140313

REACTIONS (2)
  - Chest wall mass [Unknown]
  - Pleural effusion [Unknown]

NARRATIVE: CASE EVENT DATE: 20140319
